FAERS Safety Report 18381012 (Version 1)
Quarter: 2020Q4

REPORT INFORMATION
  Report Type: Spontaneous
  Country: IN (occurrence: IN)
  Receive Date: 20201014
  Receipt Date: 20201014
  Transmission Date: 20210114
  Serious: Yes (Hospitalization)
  Sender: FDA-Public Use
  Company Number: IN-GLAXOSMITHKLINE-IN2020APC195486

PATIENT
  Age: 65 Year
  Sex: Male

DRUGS (2)
  1. CEFTUM [CEFUROXIME AXETIL] [Suspect]
     Active Substance: CEFUROXIME AXETIL
     Indication: POSTOPERATIVE CARE
     Dosage: UNK
  2. SUPACEF [Suspect]
     Active Substance: CEFUROXIME
     Indication: POSTOPERATIVE CARE
     Dosage: 750 MG, TID

REACTIONS (2)
  - Hospitalisation [Recovered/Resolved]
  - Diarrhoea [Unknown]
